FAERS Safety Report 5608842-1 (Version None)
Quarter: 2008Q1

REPORT INFORMATION
  Report Type: 
  Country: None (occurrence: None)
  Receive Date: 20080131
  Receipt Date: 20080125
  Transmission Date: 20080703
  Serious: Yes (Other)
  Sender: FDA-Public Use
  Company Number: US-JNJFOC-20080106462

PATIENT
  Age: 51 Year
  Sex: Male

DRUGS (4)
  1. REMICADE [Suspect]
     Indication: COLITIS ULCERATIVE
     Route: 042
  2. ZETIA [Concomitant]
  3. ASACOL [Concomitant]
  4. CALCIUM GLUCONATE [Concomitant]

REACTIONS (1)
  - CARDIOMYOPATHY [None]
